FAERS Safety Report 14807558 (Version 1)
Quarter: 2018Q2

REPORT INFORMATION
  Report Type: Spontaneous
  Country: US (occurrence: US)
  Receive Date: 20180425
  Receipt Date: 20180425
  Transmission Date: 20180711
  Serious: Yes (Hospitalization, Other)
  Sender: FDA-Public Use
  Company Number: US-GLAXOSMITHKLINE-US2018070908

PATIENT
  Sex: Male

DRUGS (10)
  1. DUONEB [Concomitant]
     Active Substance: ALBUTEROL SULFATE\IPRATROPIUM BROMIDE
  2. METOPROLOL. [Concomitant]
     Active Substance: METOPROLOL
  3. RANITIDINE. [Concomitant]
     Active Substance: RANITIDINE
  4. VITAMIN C [Concomitant]
     Active Substance: ASCORBIC ACID
  5. ADVAIR DISKUS [Suspect]
     Active Substance: FLUTICASONE PROPIONATE\SALMETEROL XINAFOATE
     Indication: CHRONIC OBSTRUCTIVE PULMONARY DISEASE
     Dosage: 1 PUFF(S), BID
     Dates: end: 2011
  6. DIGOXIN. [Concomitant]
     Active Substance: DIGOXIN
  7. LASIX [Concomitant]
     Active Substance: FUROSEMIDE
  8. ZINC. [Concomitant]
     Active Substance: ZINC
  9. PULMICORT TURBUHALER [Suspect]
     Active Substance: BUDESONIDE
     Indication: PRODUCT USED FOR UNKNOWN INDICATION
     Dosage: UNK
  10. ELIQUIS [Concomitant]
     Active Substance: APIXABAN

REACTIONS (1)
  - Pneumonia [Recovered/Resolved]
